FAERS Safety Report 20481902 (Version 1)
Quarter: 2022Q1

REPORT INFORMATION
  Report Type: Other
  Country: GB (occurrence: None)
  Receive Date: 20220216
  Receipt Date: 20220216
  Transmission Date: 20220423
  Serious: Yes (Other)
  Sender: FDA-Public Use
  Company Number: GB-Invatech-000224

PATIENT
  Age: 30 Year
  Sex: Female

DRUGS (5)
  1. AMANTADINE [Suspect]
     Active Substance: AMANTADINE
     Indication: Relapsing-remitting multiple sclerosis
     Dosage: 200 MG
  2. METHYLPREDNISOLONE [Concomitant]
     Active Substance: METHYLPREDNISOLONE
     Indication: Relapsing-remitting multiple sclerosis
     Route: 048
  3. GLATIRAMER ACETATE [Concomitant]
     Active Substance: GLATIRAMER ACETATE
     Indication: Relapsing-remitting multiple sclerosis
  4. AMANTADINE [Suspect]
     Active Substance: AMANTADINE
     Indication: Relapsing-remitting multiple sclerosis
     Dosage: 200 MG TWICE A DAY TO 200 MG IN THE MORNING
  5. AMANTADINE [Suspect]
     Active Substance: AMANTADINE
     Indication: Relapsing-remitting multiple sclerosis
     Dosage: 200 MG TWICE A DAY

REACTIONS (2)
  - Toxicity to various agents [Recovered/Resolved]
  - Multiple sclerosis [Recovered/Resolved]
